FAERS Safety Report 4548053-4 (Version None)
Quarter: 2005Q1

REPORT INFORMATION
  Report Type: 
  Country: None (occurrence: None)
  Receive Date: 20050104
  Receipt Date: 20050104
  Transmission Date: 20050727
  Serious: Yes (Disabling)
  Sender: FDA-Public Use
  Company Number: None

PATIENT
  Age: 41 Year
  Sex: Male
  Weight: 103.4201 kg

DRUGS (1)
  1. HALDOL [Suspect]
     Dosage: DECALITER    MONTHLY  INTRAMUSCU
     Route: 030
     Dates: start: 20001015, end: 20030406

REACTIONS (1)
  - TARDIVE DYSKINESIA [None]
